FAERS Safety Report 10013809 (Version 2)
Quarter: 2014Q1

REPORT INFORMATION
  Report Type: Report from Study
  Country: BE (occurrence: BE)
  Receive Date: 20140316
  Receipt Date: 20140331
  Transmission Date: 20141002
  Serious: Yes (Other)
  Sender: FDA-Public Use
  Company Number: BE-US-EMD SERONO, INC.-7274855

PATIENT
  Age: 40 Year
  Sex: Male

DRUGS (3)
  1. REBIF [Suspect]
     Indication: MULTIPLE SCLEROSIS
     Dates: start: 20081002, end: 201010
  2. REBIF [Suspect]
     Dates: start: 201010, end: 201209
  3. REBIF [Suspect]
     Dates: start: 201209, end: 20131123

REACTIONS (4)
  - Panniculitis [Not Recovered/Not Resolved]
  - Injection site induration [Not Recovered/Not Resolved]
  - Lack of injection site rotation [Unknown]
  - Intentional drug misuse [Unknown]
